FAERS Safety Report 24709138 (Version 1)
Quarter: 2024Q4

REPORT INFORMATION
  Report Type: Report from Study
  Country: NL (occurrence: NL)
  Receive Date: 20241208
  Receipt Date: 20241208
  Transmission Date: 20250114
  Serious: Yes (Other)
  Sender: ABBVIE
  Company Number: NL-ABBVIE-6035766

PATIENT
  Age: 73 Year
  Sex: Male

DRUGS (5)
  1. CARBIDOPA\LEVODOPA [Suspect]
     Active Substance: CARBIDOPA\LEVODOPA
     Indication: Parkinson^s disease
     Route: 050
     Dates: start: 20151209
  2. CARBIDOPA\LEVODOPA [Suspect]
     Active Substance: CARBIDOPA\LEVODOPA
     Dosage: MD:11.3 ML, CD:2.8ML/H, ED:2.0ML, REMAINS AT 16
     Route: 050
     Dates: start: 20240923, end: 20241121
  3. CARBIDOPA\LEVODOPA [Suspect]
     Active Substance: CARBIDOPA\LEVODOPA
     Dosage: MD:11.3 ML, CD:2.8ML/H, ED:2.0ML, REMAINS AT 16
     Route: 050
     Dates: start: 20241121
  4. RIVASTIGMINE [Concomitant]
     Active Substance: RIVASTIGMINE
     Indication: Product used for unknown indication
     Route: 065
  5. CLOZAPINE [Concomitant]
     Active Substance: CLOZAPINE
     Indication: Hallucination

REACTIONS (5)
  - Unresponsive to stimuli [Recovered/Resolved]
  - Device connection issue [Recovered/Resolved]
  - Device issue [Recovered/Resolved]
  - Abnormal dreams [Recovered/Resolved]
  - Hallucination [Recovered/Resolved]
